FAERS Safety Report 4966105-1 (Version None)
Quarter: 2006Q2

REPORT INFORMATION
  Report Type: 
  Country: None (occurrence: None)
  Receive Date: 20060407
  Receipt Date: 20060127
  Transmission Date: 20061013
  Serious: Yes (Other)
  Sender: FDA-Public Use
  Company Number: DE-GILEAD-2006-0009165

PATIENT
  Sex: Male
  Weight: 93 kg

DRUGS (6)
  1. TRUVADA [Suspect]
     Indication: HIV INFECTION
     Route: 048
  2. VIRAMUNE [Suspect]
     Indication: HIV INFECTION
     Route: 048
  3. CONCOR 5 [Concomitant]
     Route: 048
  4. DELIX 5 PLUS [Concomitant]
     Route: 048
  5. ACTRAPID [Concomitant]
     Route: 058
     Dates: start: 20000101
  6. PROTAPHANE [Concomitant]
     Route: 058
     Dates: start: 20000101

REACTIONS (7)
  - ALLERGIC GRANULOMATOUS ANGIITIS [None]
  - BLOOD IMMUNOGLOBULIN E INCREASED [None]
  - EOSINOPHILIA [None]
  - HAEMOPTYSIS [None]
  - LUNG INFILTRATION [None]
  - PLEURAL EFFUSION [None]
  - PYREXIA [None]
